FAERS Safety Report 15474796 (Version 1)
Quarter: 2018Q4

REPORT INFORMATION
  Report Type: Spontaneous
  Country: US (occurrence: US)
  Receive Date: 20181008
  Receipt Date: 20181008
  Transmission Date: 20190205
  Serious: Yes (Hospitalization, Other)
  Sender: FDA-Public Use
  Company Number: US-IMPAX LABORATORIES, INC-2018-IPXL-03236

PATIENT
  Age: 11 Year
  Sex: Male
  Weight: 105 kg

DRUGS (2)
  1. FLUDROCORTISONE ACETATE. [Suspect]
     Active Substance: FLUDROCORTISONE ACETATE
     Indication: PRODUCT USED FOR UNKNOWN INDICATION
     Dosage: UNK
     Route: 065
  2. FLUDROCORTISONE ACETATE. [Suspect]
     Active Substance: FLUDROCORTISONE ACETATE
     Dosage: UNK, TITRATED DOSE
     Route: 065

REACTIONS (5)
  - Campylobacter gastroenteritis [Unknown]
  - Decreased appetite [Unknown]
  - Clostridium difficile colitis [Unknown]
  - Sleep apnoea syndrome [Unknown]
  - Hypotension [Unknown]
